FAERS Safety Report 4308851-9 (Version None)
Quarter: 2004Q1

REPORT INFORMATION
  Report Type: 
  Country: None (occurrence: None)
  Receive Date: 20040301
  Receipt Date: 20040301
  Transmission Date: 20041129
  Serious: Yes (Hospitalization)
  Sender: FDA-Public Use
  Company Number: None

PATIENT
  Age: 90 Year
  Sex: Female
  Weight: 55.2481 kg

DRUGS (7)
  1. TETRACYCLINE [Suspect]
     Indication: HELICOBACTER INFECTION
  2. PROTONIX [Suspect]
     Indication: HELICOBACTER INFECTION
  3. METRONIDAZOLE [Suspect]
     Indication: HELICOBACTER INFECTION
  4. ALLOPURINOL [Concomitant]
  5. NORVASC [Concomitant]
  6. TOPROL-XL [Concomitant]
  7. CLARITIN [Concomitant]

REACTIONS (9)
  - ANOREXIA [None]
  - ASTHENIA [None]
  - DYSGEUSIA [None]
  - HYPOVOLAEMIA [None]
  - NAUSEA [None]
  - ORTHOSTATIC HYPOTENSION [None]
  - RETCHING [None]
  - VOMITING [None]
  - WEIGHT DECREASED [None]
